FAERS Safety Report 24467941 (Version 1)
Quarter: 2024Q4

REPORT INFORMATION
  Report Type: Spontaneous
  Country: US (occurrence: US)
  Receive Date: 20241018
  Receipt Date: 20241018
  Transmission Date: 20250114
  Serious: No
  Sender: Phathom Pharmaceuticals
  Company Number: US-PHATHOM PHARMACEUTICALS INC.-2024PHT00808

PATIENT
  Age: 57 Year
  Sex: Female
  Weight: 65.771 kg

DRUGS (4)
  1. VOQUEZNA [Suspect]
     Active Substance: VONOPRAZAN FUMARATE
     Indication: Erosive oesophagitis
     Dosage: 10 MG, 2X/DAY
     Route: 048
     Dates: start: 20240826
  2. PEPCID [Concomitant]
     Active Substance: FAMOTIDINE
  3. PREVACID [Concomitant]
     Active Substance: LANSOPRAZOLE
  4. SUCRALFATE [Concomitant]
     Active Substance: SUCRALFATE

REACTIONS (2)
  - Therapeutic product effect incomplete [Not Recovered/Not Resolved]
  - Off label use [Not Recovered/Not Resolved]

NARRATIVE: CASE EVENT DATE: 20240826
